FAERS Safety Report 7362127-4 (Version None)
Quarter: 2011Q1

REPORT INFORMATION
  Report Type: 
  Country: None (occurrence: None)
  Receive Date: 20110318
  Receipt Date: 20110221
  Transmission Date: 20110831
  Serious: No
  Sender: FDA-Public Use
  Company Number: US-B.I. PHARMACEUTICALS,INC./RIDGEFIELD-2011-BP-01076BP

PATIENT
  Sex: Male

DRUGS (4)
  1. DIOVAN [Concomitant]
     Indication: ATRIAL FIBRILLATION
  2. METOPROLOL SUCCINATE [Concomitant]
  3. PRADAXA [Suspect]
     Indication: ATRIAL FIBRILLATION
     Dosage: 300 MG
     Route: 048
     Dates: start: 20101201
  4. TOPROL-XL [Concomitant]
     Indication: ATRIAL FIBRILLATION

REACTIONS (1)
  - COUGH [None]
